FAERS Safety Report 23195253 (Version 2)
Quarter: 2024Q4

REPORT INFORMATION
  Report Type: Spontaneous
  Country: US (occurrence: US)
  Receive Date: 20231117
  Receipt Date: 20241122
  Transmission Date: 20250115
  Serious: Yes (Life-Threatening, Hospitalization, Other)
  Sender: ALKEM
  Company Number: US-ALKEM LABORATORIES LIMITED-US-ALKEM-2023-08891

PATIENT
  Age: 42 Year
  Sex: Male

DRUGS (8)
  1. CAFFEINE [Suspect]
     Active Substance: CAFFEINE
     Indication: Suicide attempt
     Dosage: 200 MILLIGRAM, 120 NO-DOZ TABLETS
     Route: 048
  2. CAFFEINE [Suspect]
     Active Substance: CAFFEINE
     Dosage: UNK (24 GRAM)
     Route: 065
  3. OLANZAPINE [Suspect]
     Active Substance: OLANZAPINE
     Indication: Schizoaffective disorder
     Dosage: UNK
     Route: 065
  4. OLANZAPINE [Suspect]
     Active Substance: OLANZAPINE
     Indication: Schizophrenia
  5. OLANZAPINE [Suspect]
     Active Substance: OLANZAPINE
     Indication: Bipolar disorder
  6. LITHIUM [Suspect]
     Active Substance: LITHIUM
     Indication: Schizoaffective disorder
     Dosage: UNK
     Route: 065
  7. LITHIUM [Suspect]
     Active Substance: LITHIUM
     Indication: Schizophrenia
  8. LITHIUM [Suspect]
     Active Substance: LITHIUM
     Indication: Bipolar disorder

REACTIONS (10)
  - Rhabdomyolysis [Unknown]
  - Acute kidney injury [Unknown]
  - Pneumonia aspiration [Unknown]
  - Overdose [Unknown]
  - Liver injury [Unknown]
  - Loss of consciousness [Unknown]
  - Drug abuse [Unknown]
  - Vomiting [Unknown]
  - Diarrhoea [Unknown]
  - Treatment noncompliance [Unknown]
